FAERS Safety Report 4641672-6 (Version None)
Quarter: 2005Q2

REPORT INFORMATION
  Report Type: 
  Country: None (occurrence: None)
  Receive Date: 20050420
  Receipt Date: 20050408
  Transmission Date: 20051028
  Serious: No
  Sender: FDA-Public Use
  Company Number: 05P-087-0297183-00

PATIENT
  Age: 72 Year
  Sex: Male

DRUGS (9)
  1. BIAXIN [Suspect]
     Indication: POSTOPERATIVE INFECTION
     Dosage: 400 MG, PER ORAL
     Route: 048
     Dates: start: 19990826, end: 19990908
  2. BIAXIN [Suspect]
     Indication: PROPHYLAXIS
     Dosage: 400 MG, PER ORAL
     Route: 048
     Dates: start: 19990826, end: 19990908
  3. ALUMINIUM HYDROXIDE/MAGNESIUM HYDROXIDE [Concomitant]
  4. CETRAXATE HYDROCHLORIDE [Concomitant]
  5. ANTIBIOTICS- RESISTANT LACTIC ACID BACTERIA [Concomitant]
  6. CILAZAPRIL [Concomitant]
  7. ZOPICLONE [Concomitant]
  8. ISOSORBIDE DINITRATE [Concomitant]
  9. LIMAPROST  ALFADEX [Concomitant]

REACTIONS (1)
  - HYPONATRAEMIA [None]
